FAERS Safety Report 10685594 (Version 1)
Quarter: 2014Q4

REPORT INFORMATION
  Report Type: Spontaneous
  Country: US (occurrence: US)
  Receive Date: 20141231
  Receipt Date: 20141231
  Transmission Date: 20150529
  Serious: No
  Sender: FDA-Public Use
  Company Number: US-TARO-2014TAR00177

PATIENT
  Age: 78 Year
  Sex: Male
  Weight: 87.53 kg

DRUGS (1)
  1. HYDROCORTISONE CREAM USP 2.5% [Suspect]
     Active Substance: HYDROCORTISONE
     Indication: HAEMORRHOIDS
     Dosage: UNK, ONCE
     Route: 061
     Dates: start: 20140718, end: 20140718

REACTIONS (4)
  - Application site pain [Recovered/Resolved]
  - Application site haemorrhage [Recovered/Resolved]
  - Application site pruritus [Recovered/Resolved]
  - Application site irritation [Recovered/Resolved]

NARRATIVE: CASE EVENT DATE: 201407
